FAERS Safety Report 8476546-6 (Version None)
Quarter: 2012Q2

REPORT INFORMATION
  Report Type: 
  Country: None (occurrence: None)
  Receive Date: 20120628
  Receipt Date: 20120622
  Transmission Date: 20120825
  Serious: No
  Sender: FDA-Public Use
  Company Number: US-TEVA-345157USA

PATIENT
  Sex: Female
  Weight: 64.922 kg

DRUGS (10)
  1. CLONAZEPAM [Concomitant]
     Indication: ANXIETY
  2. SUMATRIPTAN [Concomitant]
     Indication: MIGRAINE
  3. VICODIN [Concomitant]
     Indication: BACK PAIN
  4. NUVIGIL [Suspect]
     Route: 048
     Dates: start: 20120429
  5. DICLOFENAC SODIUM [Concomitant]
     Indication: MIGRAINE
  6. NUVIGIL [Suspect]
     Indication: NARCOLEPSY
     Route: 048
     Dates: start: 20120422
  7. CARISOPRODOL [Concomitant]
     Indication: MUSCLE RELAXANT THERAPY
  8. ALBUTEROL SULATE [Concomitant]
     Indication: ASTHMA
  9. NUVIGIL [Suspect]
     Dosage: 750 MILLIGRAM;
     Route: 048
     Dates: start: 20120101
  10. DULOXETINE HYDROCHLORIDE [Concomitant]
     Indication: DEPRESSION
     Dosage: 60 MILLIGRAM;
     Route: 048

REACTIONS (10)
  - DIARRHOEA [None]
  - NAUSEA [None]
  - IRRITABILITY [None]
  - FEELING ABNORMAL [None]
  - DIZZINESS [None]
  - MIGRAINE [None]
  - DRUG INEFFECTIVE [None]
  - DEPRESSION [None]
  - WEIGHT DECREASED [None]
  - DECREASED APPETITE [None]
